FAERS Safety Report 15490456 (Version 1)
Quarter: 2018Q4

REPORT INFORMATION
  Report Type: Report from Study
  Country: MX (occurrence: MX)
  Receive Date: 20181011
  Receipt Date: 20181011
  Transmission Date: 20190205
  Serious: Yes (Life-Threatening, Hospitalization, Other)
  Sender: FDA-Public Use
  Company Number: PHHY2018MX116367

PATIENT
  Sex: Female
  Weight: 64 kg

DRUGS (8)
  1. AMINO ACIDS [Concomitant]
     Active Substance: AMINO ACIDS
     Indication: RENAL FAILURE
     Dosage: 3 DF, IN THE MORNING, IN THE AFTERNOON AND AT NIGHT, SINCE 8 MONTHS
     Route: 065
  2. RENAGEL [Concomitant]
     Active Substance: SEVELAMER HYDROCHLORIDE
     Indication: RENAL FAILURE
     Dosage: 4 DF,1 IN THE MORNING, 2 IN THE AFTERNOON AND 1 AT NIGHT, SINCE 8 MONTHS
     Route: 048
  3. EXFORGE [Suspect]
     Active Substance: AMLODIPINE BESYLATE\VALSARTAN
     Indication: HYPERTENSION
     Dosage: 2 DF, BID (AMLODIPINE 5MG, VALSARTAN 320 MG) (ONE IN THE MORNING AND ONE AT NIGHT)
     Route: 048
  4. INSULIN [Concomitant]
     Active Substance: INSULIN NOS
     Indication: DIABETES MELLITUS
     Dosage: 1 DF, QD (IN THE MORNING) SINCE 8 MONTHS
     Route: 065
  5. RENAGEL [Concomitant]
     Active Substance: SEVELAMER HYDROCHLORIDE
     Indication: BLOOD UREA ABNORMAL
  6. RENAGEL [Concomitant]
     Active Substance: SEVELAMER HYDROCHLORIDE
     Indication: BLOOD CREATININE ABNORMAL
  7. ADEPSIQUE [Concomitant]
     Indication: MENTAL DISORDER
     Dosage: 1.5 DF, (0.5 IN THE MORNING AND 1 AT NIGHT) SINCE 20 YEARS
     Route: 048
  8. ADEPSIQUE [Concomitant]
     Indication: SLEEP DISORDER

REACTIONS (8)
  - Renal failure [Unknown]
  - Blood disorder [Unknown]
  - Gait disturbance [Not Recovered/Not Resolved]
  - Vitreous haemorrhage [Recovering/Resolving]
  - Blood urea increased [Not Recovered/Not Resolved]
  - Feeling abnormal [Unknown]
  - Inappropriate schedule of product administration [Unknown]
  - Incorrect dose administered [Unknown]
